FAERS Safety Report 6389643-6 (Version None)
Quarter: 2009Q4

REPORT INFORMATION
  Report Type: 
  Country: None (occurrence: None)
  Receive Date: 20091006
  Receipt Date: 20091001
  Transmission Date: 20100525
  Serious: Yes (Death)
  Sender: FDA-Public Use
  Company Number: PHEH2009US11575

PATIENT

DRUGS (1)
  1. EXJADE [Suspect]
     Dosage: 1500 MG DAILY
     Dates: start: 20090603, end: 20090826

REACTIONS (3)
  - GRAFT VERSUS HOST DISEASE [None]
  - PNEUMONIA FUNGAL [None]
  - STEM CELL TRANSPLANT [None]
